FAERS Safety Report 8940443 (Version 2)
Quarter: 2015Q1

REPORT INFORMATION
  Report Type: Report from Study
  Country: FR (occurrence: FR)
  Receive Date: 20121203
  Receipt Date: 20150109
  Transmission Date: 20150721
  Serious: Yes (Hospitalization, Other)
  Sender: FDA-Public Use
  Company Number: FR-ROCHE-1163227

PATIENT
  Age: 61 Year
  Sex: Male

DRUGS (9)
  1. APRANAX [Concomitant]
     Active Substance: NAPROXEN
     Route: 065
  2. MABTHERA [Suspect]
     Active Substance: RITUXIMAB
     Dosage: D1
     Route: 042
     Dates: start: 20070424
  3. METHOTREXATE [Concomitant]
     Active Substance: METHOTREXATE
  4. MABTHERA [Suspect]
     Active Substance: RITUXIMAB
     Dosage: D15
     Route: 042
     Dates: start: 20060821
  5. PLAQUENIL [Concomitant]
     Active Substance: HYDROXYCHLOROQUINE SULFATE
  6. MABTHERA [Suspect]
     Active Substance: RITUXIMAB
     Indication: RHEUMATOID ARTHRITIS
     Dosage: D1
     Route: 042
     Dates: start: 20060807, end: 20070906
  7. SALAZOPYRINE [Concomitant]
     Active Substance: SULFASALAZINE
  8. CORTANCYL [Concomitant]
     Active Substance: PREDNISONE
  9. MABTHERA [Suspect]
     Active Substance: RITUXIMAB
     Dosage: D15
     Route: 042
     Dates: start: 20070509

REACTIONS (7)
  - Erysipelas [Not Recovered/Not Resolved]
  - Herpes zoster [Recovered/Resolved]
  - Basal cell carcinoma [Recovered/Resolved]
  - Skin ulcer [Not Recovered/Not Resolved]
  - Squamous cell carcinoma [Recovered/Resolved]
  - Weight decreased [Unknown]
  - Hyperaesthesia [Unknown]

NARRATIVE: CASE EVENT DATE: 200611
